FAERS Safety Report 9999606 (Version 1)
Quarter: 2014Q1

REPORT INFORMATION
  Report Type: Spontaneous
  Country: US (occurrence: None)
  Receive Date: 20140228
  Receipt Date: 20140228
  Transmission Date: 20141002
  Serious: Yes (Other)
  Sender: FDA-Public Use
  Company Number: PHEH2013US009754

PATIENT
  Sex: 0

DRUGS (1)
  1. TEGRETOL [Suspect]
     Route: 064

REACTIONS (2)
  - Spina bifida [None]
  - Foetal exposure during pregnancy [None]
